FAERS Safety Report 8589383-9 (Version None)
Quarter: 2012Q3

REPORT INFORMATION
  Report Type: 
  Country: None (occurrence: None)
  Receive Date: 20120813
  Receipt Date: 20120809
  Transmission Date: 20120928
  Serious: Yes (Death)
  Sender: FDA-Public Use
  Company Number: PHHY2012SE068954

PATIENT
  Age: 65 Year
  Sex: Female

DRUGS (11)
  1. METHYLPREDNISOLONE [Concomitant]
     Dosage: 100 MG, QD
     Route: 042
  2. PREDNISONE TAB [Suspect]
     Dosage: 40 MG, QD
     Route: 048
  3. PREDNISONE TAB [Suspect]
     Dosage: 17.5 MG, QD
     Route: 048
  4. AZATHIOPRINE SODIUM [Suspect]
     Dosage: 150 MG, QD
     Route: 048
  5. GLUCOCORTICOIDS [Concomitant]
     Route: 014
  6. METHOTREXATE [Suspect]
     Dosage: 20 MG, QW
  7. CYCLOPHOSPHAMIDE [Suspect]
     Dosage: 100 MG, QD
     Route: 048
  8. PREDNISONE TAB [Suspect]
     Dosage: 10 MG, QD
     Route: 048
  9. PREDNISONE TAB [Suspect]
     Dosage: 40 MG, QD
     Route: 048
  10. PREDNISONE TAB [Suspect]
     Dosage: 12.5 MG, QD
     Route: 048
  11. HEPARIN [Concomitant]
     Dosage: UNK

REACTIONS (14)
  - FATIGUE [None]
  - QUADRIPARESIS [None]
  - PROGRESSIVE MULTIFOCAL LEUKOENCEPHALOPATHY [None]
  - DYSPHAGIA [None]
  - MYOSITIS [None]
  - VERTIGO [None]
  - NYSTAGMUS [None]
  - ATAXIA [None]
  - HEPATIC ENZYME INCREASED [None]
  - ARTHRITIS [None]
  - NAUSEA [None]
  - BALANCE DISORDER [None]
  - DYSARTHRIA [None]
  - HEMIPARESIS [None]
